FAERS Safety Report 5394795-0 (Version None)
Quarter: 2007Q3

REPORT INFORMATION
  Report Type: 
  Country: None (occurrence: None)
  Receive Date: 20070723
  Receipt Date: 20070711
  Transmission Date: 20080115
  Serious: Yes (Other)
  Sender: FDA-Public Use
  Company Number: US-PFIZER INC-2007058877

PATIENT
  Sex: Female
  Weight: 81.8 kg

DRUGS (3)
  1. CHANTIX [Suspect]
     Indication: SMOKING CESSATION THERAPY
  2. HYDROCODONE BITARTRATE [Concomitant]
     Indication: COUGH
  3. GUAIFENESIN [Concomitant]
     Indication: COUGH

REACTIONS (9)
  - AGITATION [None]
  - ANXIETY [None]
  - CRYING [None]
  - EMOTIONAL DISORDER [None]
  - FEELING ABNORMAL [None]
  - IRRITABILITY [None]
  - PARANOIA [None]
  - PERSONALITY DISORDER [None]
  - SUICIDAL IDEATION [None]
